FAERS Safety Report 24773057 (Version 1)
Quarter: 2024Q4

REPORT INFORMATION
  Report Type: Spontaneous
  Country: US (occurrence: US)
  Receive Date: 20241225
  Receipt Date: 20241225
  Transmission Date: 20250115
  Serious: Yes (Other)
  Sender: AMGEN
  Company Number: US-AMGEN-USASP2024248230

PATIENT
  Age: 65 Year
  Sex: Female

DRUGS (8)
  1. EVENITY [Suspect]
     Active Substance: ROMOSOZUMAB-AQQG
     Indication: Osteoporosis
     Dosage: 210 MILLIGRAM, QMO
     Route: 065
     Dates: start: 202406
  2. JARDIANCE [Concomitant]
     Active Substance: EMPAGLIFLOZIN
     Dosage: UNK
  3. METFORMIN [Concomitant]
     Active Substance: METFORMIN HYDROCHLORIDE
     Dosage: UNK
  4. PRAVASTATIN [Concomitant]
     Active Substance: PRAVASTATIN
     Dosage: UNK
  5. GABAPENTIN [Concomitant]
     Active Substance: GABAPENTIN
     Indication: Back disorder
     Dosage: 300 MILLIGRAM, TID
  6. GABAPENTIN [Concomitant]
     Active Substance: GABAPENTIN
     Indication: Musculoskeletal discomfort
  7. PERCOCET [Concomitant]
     Active Substance: ACETAMINOPHEN\OXYCODONE HYDROCHLORIDE
     Indication: Back disorder
     Dosage: 325 MILLIGRAM 1 TO 4 AS NEEDED
  8. PERCOCET [Concomitant]
     Active Substance: ACETAMINOPHEN\OXYCODONE HYDROCHLORIDE
     Indication: Musculoskeletal discomfort

REACTIONS (11)
  - Spinal disorder [Not Recovered/Not Resolved]
  - Vitamin D decreased [Unknown]
  - Blood iron decreased [Unknown]
  - Weight decreased [Not Recovered/Not Resolved]
  - Fall [Not Recovered/Not Resolved]
  - Contusion [Not Recovered/Not Resolved]
  - Head injury [Not Recovered/Not Resolved]
  - Vomiting [Not Recovered/Not Resolved]
  - Diarrhoea [Not Recovered/Not Resolved]
  - Abdominal pain upper [Not Recovered/Not Resolved]
  - Limb injury [Not Recovered/Not Resolved]

NARRATIVE: CASE EVENT DATE: 20240101
